FAERS Safety Report 5716259-4 (Version None)
Quarter: 2008Q2

REPORT INFORMATION
  Report Type: 
  Country: None (occurrence: None)
  Receive Date: 20080424
  Receipt Date: 20080415
  Transmission Date: 20081010
  Serious: Yes (Hospitalization, Other)
  Sender: FDA-Public Use
  Company Number: A0724380A

PATIENT
  Age: 44 Year
  Sex: Female
  Weight: 38.2 kg

DRUGS (3)
  1. COREG [Suspect]
     Indication: DRUG USE FOR UNKNOWN INDICATION
  2. PROCRIT [Suspect]
     Dosage: 4000IU WEEKLY
     Route: 058
     Dates: start: 20071001, end: 20080214
  3. PHENYTOIN [Suspect]
     Indication: DRUG USE FOR UNKNOWN INDICATION
     Dates: start: 20071101

REACTIONS (10)
  - ANAEMIA [None]
  - BLOOD CREATININE ABNORMAL [None]
  - BONE MARROW FAILURE [None]
  - DRUG INEFFECTIVE [None]
  - DRUG SPECIFIC ANTIBODY ABSENT [None]
  - HAEMATOCRIT ABNORMAL [None]
  - HAEMOGLOBIN DECREASED [None]
  - HYPERPARATHYROIDISM [None]
  - PNEUMONIA [None]
  - UNDERDOSE [None]
